FAERS Safety Report 20645733 (Version 1)
Quarter: 2022Q1

REPORT INFORMATION
  Report Type: Spontaneous
  Country: IN (occurrence: IN)
  Receive Date: 20220328
  Receipt Date: 20220328
  Transmission Date: 20220424
  Serious: Yes (Other)
  Sender: FDA-Public Use
  Company Number: IN-ABBOTT-2022A-1346656

PATIENT
  Age: 40 Year
  Sex: Female
  Weight: 81.2 kg

DRUGS (5)
  1. LEVOTHYROXINE [Suspect]
     Active Substance: LEVOTHYROXINE
     Indication: Product used for unknown indication
     Dosage: USED 1 BOTTLE OF THYRONORM 25MCG
     Route: 048
     Dates: start: 20220220
  2. LEVOTHYROXINE [Suspect]
     Active Substance: LEVOTHYROXINE
     Dosage: USED 1 BOTTLE OF THYRONORM 150 MCG
     Route: 048
     Dates: start: 20220125
  3. ISOXSUPRINE HYDROCHLORIDE [Suspect]
     Active Substance: ISOXSUPRINE HYDROCHLORIDE
     Indication: Product used for unknown indication
     Dosage: OD
     Route: 048
  4. DUBAGEST [Concomitant]
     Indication: Pregnancy
     Dosage: OA
     Route: 048
  5. ASPIRIN [Concomitant]
     Active Substance: ASPIRIN
     Indication: Product used for unknown indication
     Dosage: OA
     Route: 048

REACTIONS (3)
  - Blood thyroid stimulating hormone increased [Unknown]
  - Foetal exposure during pregnancy [Unknown]
  - Product complaint [Unknown]

NARRATIVE: CASE EVENT DATE: 20220220
